FAERS Safety Report 12904148 (Version 2)
Quarter: 2017Q1

REPORT INFORMATION
  Report Type: Report from Study
  Country: GB (occurrence: GB)
  Receive Date: 20161102
  Receipt Date: 20170130
  Transmission Date: 20170428
  Serious: No
  Sender: FDA-Public Use
  Company Number: GB-BIOGEN-2016BI00215012

PATIENT
  Age: 49 Year
  Sex: Female
  Weight: 62.4 kg

DRUGS (7)
  1. PARACETAMOL [Concomitant]
     Active Substance: ACETAMINOPHEN
     Indication: HEADACHE
     Dosage: PRN
     Route: 048
     Dates: start: 20151208
  2. EPIDERM [Concomitant]
     Active Substance: BETAMETHASONE VALERATE\CLIOQUINOL\GENTAMICIN SULFATE\TOLNAFTATE
     Indication: DERMATITIS
     Dosage: PRN
     Route: 061
     Dates: start: 20150401
  3. CERTRABAN [Concomitant]
     Indication: DERMATITIS
     Dosage: PRN
     Route: 061
     Dates: start: 20151117
  4. DACLIZUMAB HYP [Suspect]
     Active Substance: DACLIZUMAB
     Indication: MULTIPLE SCLEROSIS
     Route: 058
     Dates: start: 20151110, end: 20160301
  5. FLUOXETINE [Concomitant]
     Active Substance: FLUOXETINE HYDROCHLORIDE
     Indication: DEPRESSION
     Route: 048
     Dates: start: 20141001
  6. NAPROXEN. [Concomitant]
     Active Substance: NAPROXEN
     Indication: HEADACHE
     Route: 048
     Dates: start: 20160222
  7. IBUPROFEN. [Concomitant]
     Active Substance: IBUPROFEN
     Indication: HEADACHE
     Route: 048
     Dates: start: 20151208

REACTIONS (1)
  - Lymphoid tissue hyperplasia [Not Recovered/Not Resolved]

NARRATIVE: CASE EVENT DATE: 20151201
